FAERS Safety Report 16155776 (Version 2)
Quarter: 2019Q2

REPORT INFORMATION
  Report Type: Spontaneous
  Country: US (occurrence: US)
  Receive Date: 20190404
  Receipt Date: 20190410
  Transmission Date: 20190711
  Serious: Yes (Other)
  Sender: FDA-Public Use
  Company Number: US-CIPLA LTD.-2019US01681

PATIENT

DRUGS (2)
  1. BUDESONIDE. [Suspect]
     Active Substance: BUDESONIDE
     Indication: COUGH
     Dosage: 1 MG/2 ML, BID (TWO VIALS TWICE A DAY)
     Route: 045
     Dates: start: 2017
  2. BUDESONIDE. [Suspect]
     Active Substance: BUDESONIDE
     Indication: DYSPNOEA
     Dosage: 1 MG/2 ML, FIRST VIAL
     Route: 045
     Dates: start: 20190319, end: 20190319

REACTIONS (6)
  - Cough [Not Recovered/Not Resolved]
  - Liquid product physical issue [Unknown]
  - Product quality issue [Unknown]
  - Drug ineffective [Unknown]
  - Product colour issue [Unknown]
  - Product deposit [Unknown]

NARRATIVE: CASE EVENT DATE: 20190319
